FAERS Safety Report 8303973-X (Version None)
Quarter: 2012Q2

REPORT INFORMATION
  Report Type: 
  Country: None (occurrence: None)
  Receive Date: 20120420
  Receipt Date: 20120420
  Transmission Date: 20120825
  Serious: No
  Sender: FDA-Public Use
  Company Number: None

PATIENT
  Age: 63 Year
  Sex: Male
  Weight: 63.9572 kg

DRUGS (5)
  1. AVASTIN [Concomitant]
  2. OXALIPLATIN [Suspect]
  3. FLUOROURACIL [Concomitant]
  4. OXALIPLATIN [Suspect]
     Indication: COLON CANCER
     Dosage: 145 MG IVSS
     Route: 042
     Dates: start: 20100101
  5. FUSILAR [Concomitant]

REACTIONS (5)
  - ERYTHEMA [None]
  - INFUSION RELATED REACTION [None]
  - VOMITING [None]
  - PRURITUS [None]
  - NAUSEA [None]
